FAERS Safety Report 4666000-1 (Version None)
Quarter: 2005Q2

REPORT INFORMATION
  Report Type: 
  Country: None (occurrence: None)
  Receive Date: 20050517
  Receipt Date: 20050411
  Transmission Date: 20051028
  Serious: No
  Sender: FDA-Public Use
  Company Number: S05-USA-01863-01

PATIENT
  Age: 80 Year
  Sex: Female

DRUGS (8)
  1. NAMENDA [Suspect]
     Indication: DEMENTIA ALZHEIMER'S TYPE
     Dosage: 5 MG QD; PO
     Route: 048
     Dates: start: 20040301, end: 20040101
  2. NAMENDA [Suspect]
     Indication: DEMENTIA ALZHEIMER'S TYPE
     Dosage: 5 MG BID; PO
     Route: 048
     Dates: start: 20040101, end: 20040101
  3. NAMENDA [Suspect]
     Indication: DEMENTIA ALZHEIMER'S TYPE
     Dosage: 15 MG QD; PO
     Route: 048
     Dates: start: 20040101, end: 20040101
  4. NAMENDA [Suspect]
     Indication: DEMENTIA ALZHEIMER'S TYPE
     Dosage: 10 MG BID; PO
     Route: 048
     Dates: start: 20040101
  5. ARICEPT (BONEPEZIL HYDROCHLORIDE) [Concomitant]
  6. LEVOXYL [Concomitant]
  7. CALCIUM GLUCONATE [Concomitant]
  8. VITAMIN E [Concomitant]

REACTIONS (3)
  - ASTHENIA [None]
  - CONFUSIONAL STATE [None]
  - DELUSION [None]
